FAERS Safety Report 6201425-4 (Version None)
Quarter: 2009Q2

REPORT INFORMATION
  Report Type: 
  Country: None (occurrence: None)
  Receive Date: 20090526
  Receipt Date: 20090512
  Transmission Date: 20091009
  Serious: Yes (Hospitalization)
  Sender: FDA-Public Use
  Company Number: JP-ROCHE-629488

PATIENT
  Age: 20 Year
  Sex: Female

DRUGS (6)
  1. PEGASYS [Suspect]
     Indication: HEPATITIS C
     Route: 058
     Dates: start: 20080101, end: 20080411
  2. URSO 250 [Concomitant]
     Dosage: FORM: ORAL FORMULATION NOS
     Route: 048
  3. NEOPHAGEN [Concomitant]
     Route: 048
  4. NEORAL [Concomitant]
     Route: 048
     Dates: end: 20080429
  5. NEORAL [Concomitant]
     Route: 048
     Dates: start: 20080430, end: 20080516
  6. NEORAL [Concomitant]
     Route: 048
     Dates: start: 20080517

REACTIONS (1)
  - AUTOIMMUNE HEPATITIS [None]
